FAERS Safety Report 9398435 (Version 1)
Quarter: 2013Q3

REPORT INFORMATION
  Report Type: Spontaneous
  Country: US (occurrence: US)
  Receive Date: 20130712
  Receipt Date: 20130712
  Transmission Date: 20140515
  Serious: No
  Sender: FDA-Public Use
  Company Number: US-GLAXOSMITHKLINE-A1021877A

PATIENT
  Age: 3 Year
  Sex: Female

DRUGS (3)
  1. FLOVENT [Suspect]
     Indication: ASTHMA
     Dosage: 2PUFF TWICE PER DAY
     Route: 055
     Dates: start: 201202, end: 201203
  2. VENTOLIN [Concomitant]
     Route: 055
  3. SINGULAIR [Concomitant]

REACTIONS (3)
  - Drug ineffective [Recovered/Resolved]
  - Dysphonia [Unknown]
  - Eye disorder [Unknown]
